FAERS Safety Report 9347923 (Version 1)
Quarter: 2013Q2

REPORT INFORMATION
  Report Type: Spontaneous
  Country: US (occurrence: None)
  Receive Date: 20130612
  Receipt Date: 20130612
  Transmission Date: 20140414
  Serious: No
  Sender: FDA-Public Use
  Company Number: None

PATIENT
  Age: 44 Year
  Sex: Male

DRUGS (1)
  1. HUMIRA [Suspect]
     Route: 058
     Dates: start: 20120613

REACTIONS (3)
  - Stomatitis [None]
  - Arthralgia [None]
  - Crohn^s disease [None]
